FAERS Safety Report 16291323 (Version 1)
Quarter: 2019Q2

REPORT INFORMATION
  Report Type: Spontaneous
  Country: AU (occurrence: AU)
  Receive Date: 20190509
  Receipt Date: 20190509
  Transmission Date: 20190711
  Serious: Yes (Life-Threatening, Other)
  Sender: FDA-Public Use
  Company Number: AU-COLLEGIUM PHARMACEUTICAL, INC.-AU-2018COL014514

PATIENT
  Age: 30 Year
  Sex: Female
  Weight: 93 kg

DRUGS (7)
  1. TAPENTADOL [Suspect]
     Active Substance: TAPENTADOL
     Indication: PROCEDURAL PAIN
     Dosage: 50 MG, BID
     Route: 048
     Dates: start: 20181217, end: 20181217
  2. TRAMAL [Suspect]
     Active Substance: TRAMADOL
     Indication: PROCEDURAL PAIN
     Dosage: 50 MG, BID
     Route: 048
     Dates: start: 20181217, end: 20181217
  3. TAPENTADOL EXTENDED RELEASE [Suspect]
     Active Substance: TAPENTADOL
     Indication: PROCEDURAL PAIN
     Dosage: 50 MG, BID
     Dates: start: 20181217, end: 20181217
  4. TRAMAL [Suspect]
     Active Substance: TRAMADOL
     Dosage: 50 MG, QD
     Route: 048
     Dates: start: 20181218, end: 20181218
  5. TAPENTADOL [Suspect]
     Active Substance: TAPENTADOL
     Dosage: 50 MG, QD
     Route: 048
     Dates: start: 20181218, end: 20181218
  6. PARACETAMOL [Concomitant]
     Active Substance: ACETAMINOPHEN
     Indication: PRODUCT USED FOR UNKNOWN INDICATION
     Dosage: UNK
     Dates: start: 20181217
  7. TAPENTADOL EXTENDED RELEASE [Suspect]
     Active Substance: TAPENTADOL
     Dosage: 50 MG, QD
     Route: 048
     Dates: start: 20181218, end: 20181218

REACTIONS (8)
  - Pruritus [Unknown]
  - Pyrexia [Recovered/Resolved]
  - Food interaction [Unknown]
  - Tachycardia [Recovered/Resolved]
  - Tremor [Recovered/Resolved]
  - Nightmare [Unknown]
  - Hypertension [Recovered/Resolved]
  - Agitation [Recovered/Resolved]

NARRATIVE: CASE EVENT DATE: 20181218
